FAERS Safety Report 4723495-2 (Version None)
Quarter: 2005Q3

REPORT INFORMATION
  Report Type: 
  Country: None (occurrence: None)
  Receive Date: 20050725
  Receipt Date: 20040622
  Transmission Date: 20060218
  Serious: Yes (Hospitalization)
  Sender: FDA-Public Use
  Company Number: US-GLAXOSMITHKLINE-A0515581A

PATIENT
  Age: 50 Year
  Sex: Female

DRUGS (2)
  1. DYAZIDE [Suspect]
     Indication: HYPERTENSION
     Route: 048
     Dates: start: 19790101
  2. NO CONCURRENT MEDICATION [Concomitant]

REACTIONS (1)
  - HYPOKALAEMIA [None]
